FAERS Safety Report 4332550-0 (Version None)
Quarter: 2004Q1

REPORT INFORMATION
  Report Type: 
  Country: None (occurrence: None)
  Receive Date: 20040330
  Receipt Date: 20040314
  Transmission Date: 20041129
  Serious: Yes (Hospitalization)
  Sender: FDA-Public Use
  Company Number: NL-JNJFOC-20040304489

PATIENT
  Age: 3 Year
  Sex: Male

DRUGS (2)
  1. TOPAMAX [Suspect]
     Indication: EPILEPSY
  2. LIVOFIL (ALL OTHER THERAPEUTIC PRODUCTS) [Concomitant]

REACTIONS (5)
  - DEPRESSED LEVEL OF CONSCIOUSNESS [None]
  - HYPOTONIA [None]
  - MEDICATION ERROR [None]
  - OVERDOSE [None]
  - SOMNOLENCE [None]
